FAERS Safety Report 24428935 (Version 8)
Quarter: 2025Q1

REPORT INFORMATION
  Report Type: Spontaneous
  Country: US (occurrence: US)
  Receive Date: 20241011
  Receipt Date: 20250324
  Transmission Date: 20250409
  Serious: Yes (Hospitalization)
  Sender: LUNDBECK
  Company Number: US-LUNDBECK-DKLU4004834

PATIENT
  Age: 56 Year
  Sex: Female
  Weight: 58.06 kg

DRUGS (2)
  1. VYEPTI [Suspect]
     Active Substance: EPTINEZUMAB-JJMR
     Indication: Migraine
     Dosage: 100 MILLIGRAM
     Route: 041
     Dates: start: 20240918
  2. TOPIRAMATE [Concomitant]
     Active Substance: TOPIRAMATE
     Indication: Migraine

REACTIONS (11)
  - Loss of consciousness [Not Recovered/Not Resolved]
  - Transient ischaemic attack [Not Recovered/Not Resolved]
  - Malaise [Not Recovered/Not Resolved]
  - Drug ineffective [Not Recovered/Not Resolved]
  - Nausea [Unknown]
  - Therapeutic response delayed [Not Recovered/Not Resolved]
  - Dizziness [Not Recovered/Not Resolved]
  - Fatigue [Not Recovered/Not Resolved]
  - Heart rate increased [Not Recovered/Not Resolved]
  - Dyspnoea [Not Recovered/Not Resolved]
  - Insomnia [Not Recovered/Not Resolved]

NARRATIVE: CASE EVENT DATE: 20241201
